FAERS Safety Report 7274272-2 (Version None)
Quarter: 2010Q4

REPORT INFORMATION
  Report Type: 
  Country: None (occurrence: None)
  Receive Date: 20101206
  Receipt Date: 20100728
  Transmission Date: 20110411
  Serious: No
  Sender: FDA-Public Use
  Company Number: 2010SP041285

PATIENT
  Sex: Female

DRUGS (5)
  1. SAPHRIS [Suspect]
     Indication: SCHIZOAFFECTIVE DISORDER
     Dosage: 5 MG;BID;SL
     Route: 060
     Dates: start: 20100608
  2. BROMOCRIPTINE MESYLATE [Concomitant]
  3. DEPAKOTE [Concomitant]
  4. BENZTROPINE MESYLATE [Concomitant]
  5. LORAZEPAM [Concomitant]

REACTIONS (2)
  - DYSGEUSIA [None]
  - PARAESTHESIA ORAL [None]
